FAERS Safety Report 12724093 (Version 1)
Quarter: 2016Q3

REPORT INFORMATION
  Report Type: Spontaneous
  Country: CH (occurrence: CH)
  Receive Date: 20160908
  Receipt Date: 20160908
  Transmission Date: 20161109
  Serious: Yes (Other)
  Sender: FDA-Public Use
  Company Number: CH-ASPEN PHARMA TRADING LIMITED US-AP-2016-007931

PATIENT
  Sex: Male

DRUGS (10)
  1. DEXAMETHASONE. [Suspect]
     Active Substance: DEXAMETHASONE
     Indication: T-CELL TYPE ACUTE LEUKAEMIA
     Route: 065
     Dates: end: 200210
  2. ARA-C [Suspect]
     Active Substance: CYTARABINE
     Dosage: 4 DOSES OF INTRATHECAL THERAPY
     Route: 037
     Dates: end: 200210
  3. ASPARAGINASE [Suspect]
     Active Substance: ASPARAGINASE
     Indication: T-CELL TYPE ACUTE LEUKAEMIA
     Route: 065
     Dates: end: 200210
  4. METHOTREXATE. [Suspect]
     Active Substance: METHOTREXATE
     Dosage: 4 DOSES OF INTRATHECAL THERAPY
     Route: 037
     Dates: end: 200210
  5. TIOGUANINE [Suspect]
     Active Substance: THIOGUANINE ANHYDROUS
     Indication: T-CELL TYPE ACUTE LEUKAEMIA
     Route: 065
     Dates: end: 200210
  6. DAUNORUBICIN [Suspect]
     Active Substance: DAUNORUBICIN
     Indication: T-CELL TYPE ACUTE LEUKAEMIA
     Route: 065
     Dates: end: 200210
  7. PREDNISOLONE. [Suspect]
     Active Substance: PREDNISOLONE
     Indication: T-CELL TYPE ACUTE LEUKAEMIA
     Dosage: 4 DOSES OF INTRATHECAL THERAPY
     Route: 037
     Dates: end: 200210
  8. VINCRISTINE [Suspect]
     Active Substance: VINCRISTINE
     Indication: T-CELL TYPE ACUTE LEUKAEMIA
     Route: 065
     Dates: end: 200210
  9. METHOTREXATE. [Suspect]
     Active Substance: METHOTREXATE
     Indication: T-CELL TYPE ACUTE LEUKAEMIA
     Route: 065
     Dates: end: 200210
  10. ARA-C [Suspect]
     Active Substance: CYTARABINE
     Indication: T-CELL TYPE ACUTE LEUKAEMIA
     Route: 065
     Dates: end: 200210

REACTIONS (1)
  - Ewing^s sarcoma [Not Recovered/Not Resolved]
